FAERS Safety Report 7815583-9 (Version None)
Quarter: 2011Q4

REPORT INFORMATION
  Report Type: 
  Country: None (occurrence: None)
  Receive Date: 20111014
  Receipt Date: 20111005
  Transmission Date: 20120403
  Serious: Yes (Other)
  Sender: FDA-Public Use
  Company Number: CA-JNJFOC-20111006076

PATIENT
  Sex: Male
  Weight: 81.65 kg

DRUGS (4)
  1. PANTOPRAZOLE SODIUM [Concomitant]
  2. IMURAN [Concomitant]
  3. REMICADE [Suspect]
     Indication: CROHN'S DISEASE
     Dates: start: 20060101
  4. CITALOPRAM [Concomitant]
     Indication: ANTIDEPRESSANT THERAPY

REACTIONS (1)
  - FOLLICULITIS [None]
